FAERS Safety Report 18342698 (Version 3)
Quarter: 2020Q4

REPORT INFORMATION
  Report Type: Spontaneous
  Country: JP (occurrence: JP)
  Receive Date: 20201005
  Receipt Date: 20201109
  Transmission Date: 20210113
  Serious: Yes (Hospitalization)
  Sender: FDA-Public Use
  Company Number: NVSJ2020JP008242

PATIENT
  Age: 23 Year
  Sex: Male

DRUGS (27)
  1. CLOZARIL [Suspect]
     Active Substance: CLOZAPINE
     Dosage: 25 MG, TID
     Route: 048
     Dates: start: 20200616, end: 20200618
  2. AKINETON-1 [Suspect]
     Active Substance: BIPERIDEN LACTATE
     Indication: PARKINSONISM
     Dosage: 1 MG, TID
     Route: 048
     Dates: start: 20200609, end: 20200804
  3. AKINETON-1 [Suspect]
     Active Substance: BIPERIDEN LACTATE
     Dosage: 1 MG, BID
     Route: 048
     Dates: start: 20200805, end: 20200820
  4. CLOZARIL [Suspect]
     Active Substance: CLOZAPINE
     Dosage: 50 MG, QID
     Route: 048
     Dates: start: 20200703, end: 20200705
  5. TEGRETOL [Suspect]
     Active Substance: CARBAMAZEPINE
     Indication: BIPOLAR I DISORDER
     Dosage: 200 MG, QD
     Route: 048
     Dates: start: 20200609, end: 20200726
  6. BLONANSERIN [Suspect]
     Active Substance: BLONANSERIN
     Dosage: 4 MG, TID
     Route: 048
     Dates: start: 20200626, end: 20200629
  7. BLONANSERIN [Suspect]
     Active Substance: BLONANSERIN
     Indication: SCHIZOPHRENIA
     Dosage: 8 MG, TID
     Route: 048
     Dates: start: 20200609, end: 20200622
  8. CLOZARIL [Suspect]
     Active Substance: CLOZAPINE
     Dosage: 125 MG
     Route: 048
     Dates: start: 20200623, end: 20200625
  9. CLOZARIL [Suspect]
     Active Substance: CLOZAPINE
     Dosage: 450 MG
     Route: 048
     Dates: start: 20200817, end: 20200819
  10. CLOZARIL [Suspect]
     Active Substance: CLOZAPINE
     Dosage: 500 MG
     Route: 048
     Dates: start: 20200820, end: 20200820
  11. CLOZARIL [Suspect]
     Active Substance: CLOZAPINE
     Dosage: 350 MG
     Route: 048
     Dates: start: 20200720, end: 20200726
  12. CLOZARIL [Suspect]
     Active Substance: CLOZAPINE
     Dosage: 100 MG, QID
     Route: 048
     Dates: start: 20200727, end: 20200816
  13. FLUNITRAZEPAM [Suspect]
     Active Substance: FLUNITRAZEPAM
     Indication: INSOMNIA
     Dosage: 2 MG, QD
     Route: 048
     Dates: start: 20200609, end: 20200822
  14. CLOZARIL [Suspect]
     Active Substance: CLOZAPINE
     Dosage: 25 MG, QD
     Route: 048
     Dates: start: 20200610, end: 20200612
  15. CLOZARIL [Suspect]
     Active Substance: CLOZAPINE
     Dosage: 25 MG, BID
     Route: 048
     Dates: start: 20200613, end: 20200615
  16. CLOZARIL [Suspect]
     Active Substance: CLOZAPINE
     Dosage: 100 MG
     Route: 048
     Dates: start: 20200619, end: 20200622
  17. CLOZARIL [Suspect]
     Active Substance: CLOZAPINE
     Dosage: 100 MG, TID
     Route: 048
     Dates: start: 20200713, end: 20200719
  18. BLONANSERIN [Suspect]
     Active Substance: BLONANSERIN
     Dosage: 4 MG, QID
     Route: 048
     Dates: start: 20200623, end: 20200625
  19. BELSOMRA [Suspect]
     Active Substance: SUVOREXANT
     Indication: INSOMNIA
     Dosage: 20 MG, QD
     Route: 048
     Dates: start: 20200609, end: 20200822
  20. HORIZON [Concomitant]
     Active Substance: DIAZEPAM
     Indication: NEUROSIS
     Dosage: 3.3 MG, TID
     Route: 048
     Dates: start: 20200821, end: 20200822
  21. CLOZARIL [Suspect]
     Active Substance: CLOZAPINE
     Indication: SCHIZOPHRENIA
     Dosage: 12.5 MG, QD
     Route: 048
     Dates: start: 20200609
  22. CLOZARIL [Suspect]
     Active Substance: CLOZAPINE
     Dosage: 225 MG
     Route: 048
     Dates: start: 20200706, end: 20200709
  23. CLOZARIL [Suspect]
     Active Substance: CLOZAPINE
     Dosage: 50 MG, TID
     Route: 048
     Dates: start: 20200626, end: 20200702
  24. CLOZARIL [Suspect]
     Active Substance: CLOZAPINE
     Dosage: 250 MG
     Route: 048
     Dates: start: 20200710, end: 20200712
  25. TEGRETOL [Suspect]
     Active Substance: CARBAMAZEPINE
     Dosage: 100 MG, QD
     Route: 048
     Dates: start: 20200727, end: 20200730
  26. BLONANSERIN [Suspect]
     Active Substance: BLONANSERIN
     Dosage: 8 MG, QD
     Route: 048
     Dates: start: 20200630, end: 20200702
  27. HIBERNA [Concomitant]
     Active Substance: PROMETHAZINE HYDROCHLORIDE
     Indication: PARKINSONISM
     Dosage: 20 MG, TID
     Route: 048
     Dates: start: 20200821, end: 20200822

REACTIONS (7)
  - Ileus paralytic [Recovered/Resolved]
  - Abdominal pain [Unknown]
  - Cold sweat [Unknown]
  - Abdominal tenderness [Unknown]
  - Colitis [Recovered/Resolved]
  - Abdominal distension [Unknown]
  - Labile blood pressure [Unknown]

NARRATIVE: CASE EVENT DATE: 20200820
